FAERS Safety Report 9936628 (Version 1)
Quarter: 2014Q1

REPORT INFORMATION
  Report Type: Spontaneous
  Country: US (occurrence: US)
  Receive Date: 20140228
  Receipt Date: 20140228
  Transmission Date: 20141002
  Serious: No
  Sender: FDA-Public Use
  Company Number: US-AMGEN-USASP2014007158

PATIENT
  Age: 23 Year
  Sex: Male

DRUGS (1)
  1. ENBREL [Suspect]
     Indication: PSORIASIS
     Dosage: UNK MG, UNK
     Route: 065
     Dates: start: 20130702, end: 2013

REACTIONS (1)
  - Psoriasis [Not Recovered/Not Resolved]
